FAERS Safety Report 7321504-8 (Version None)
Quarter: 2011Q1

REPORT INFORMATION
  Report Type: 
  Country: None (occurrence: None)
  Receive Date: 20110216
  Receipt Date: 20110202
  Transmission Date: 20110831
  Serious: Yes (Hospitalization, Other)
  Sender: FDA-Public Use
  Company Number: 2011MA000980

PATIENT
  Age: 31 Year

DRUGS (1)
  1. PHENOBARBITAL TAB [Suspect]
     Indication: DEPRESSION

REACTIONS (13)
  - DRUG RASH WITH EOSINOPHILIA AND SYSTEMIC SYMPTOMS [None]
  - ABDOMINAL PAIN [None]
  - HEPATOSPLENOMEGALY [None]
  - PYREXIA [None]
  - HUMAN HERPESVIRUS 6 INFECTION [None]
  - BLOOD ALKALINE PHOSPHATASE INCREASED [None]
  - ASPARTATE AMINOTRANSFERASE INCREASED [None]
  - GAMMA-GLUTAMYLTRANSFERASE INCREASED [None]
  - BLOOD LACTATE DEHYDROGENASE INCREASED [None]
  - ALANINE AMINOTRANSFERASE INCREASED [None]
  - LYMPHOCYTOSIS [None]
  - LYMPHADENOPATHY [None]
  - HAEMOGLOBIN DECREASED [None]
